FAERS Safety Report 8516056-0 (Version None)
Quarter: 2012Q3

REPORT INFORMATION
  Report Type: 
  Country: None (occurrence: None)
  Receive Date: 20120717
  Receipt Date: 20120515
  Transmission Date: 20120928
  Serious: No
  Sender: FDA-Public Use
  Company Number: US-NOVEN-12US004665

PATIENT
  Sex: Female

DRUGS (6)
  1. LYRICA [Concomitant]
     Indication: NEURALGIA
     Dosage: UNK
     Route: 048
  2. ATACAND [Concomitant]
     Indication: BLOOD PRESSURE ABNORMAL
     Route: 048
  3. MOBIC [Concomitant]
     Indication: ARTHRITIS
     Dosage: UNK
     Route: 048
  4. FENTANYL [Suspect]
     Indication: BACK PAIN
     Dosage: 50 UG/HR, Q 3DAYS
     Route: 062
  5. CYMBALTA [Concomitant]
     Indication: ANXIETY
     Route: 048
  6. LIPITOR [Concomitant]
     Indication: BLOOD CHOLESTEROL ABNORMAL
     Route: 048

REACTIONS (3)
  - DRUG WITHDRAWAL SYNDROME [None]
  - DRUG ADMINISTRATION ERROR [None]
  - PRODUCT QUALITY ISSUE [None]
